FAERS Safety Report 4500108-6 (Version None)
Quarter: 2004Q4

REPORT INFORMATION
  Report Type: 
  Country: None (occurrence: None)
  Receive Date: 20041112
  Receipt Date: 20041021
  Transmission Date: 20050328
  Serious: Yes (Other)
  Sender: FDA-Public Use
  Company Number: CH-GLAXOSMITHKLINE-B0349990A

PATIENT
  Age: 34 Year
  Sex: Female
  Weight: 60 kg

DRUGS (3)
  1. MALARONE [Suspect]
     Indication: MALARIA PROPHYLAXIS
     Dosage: 1TAB PER DAY
     Route: 048
     Dates: start: 20040701
  2. MMR II VACCINE [Suspect]
     Indication: PROPHYLAXIS
     Route: 058
     Dates: start: 20040701, end: 20040701
  3. STAMARIL [Suspect]
     Dates: start: 20040701, end: 20040701

REACTIONS (3)
  - ARTHRALGIA [None]
  - DIARRHOEA [None]
  - POLYARTHRITIS [None]
